FAERS Safety Report 9312137 (Version 4)
Quarter: 2013Q2

REPORT INFORMATION
  Report Type: Spontaneous
  Country: IR (occurrence: IR)
  Receive Date: 20130528
  Receipt Date: 20130625
  Transmission Date: 20140414
  Serious: Yes (Hospitalization, Other)
  Sender: FDA-Public Use
  Company Number: IR-JNJFOC-20130513284

PATIENT
  Age: 16 Year
  Sex: Female
  Weight: 50 kg

DRUGS (3)
  1. REMICADE [Suspect]
     Indication: CROHN^S DISEASE
     Dosage: 0, 2 AND 6 WEEK LOADING DOSES
     Route: 042
  2. REMICADE [Suspect]
     Indication: CROHN^S DISEASE
     Dosage: 4TH INJECTION - 8TH WEEK,??DOSE- 2 VIALS
     Route: 042
     Dates: start: 20130518, end: 20130518
  3. HYDROCORTISONE [Concomitant]
     Indication: PREMEDICATION
     Dosage: 20 MINUTES BEFORE INFLIXIMAB INFUSION
     Route: 042
     Dates: start: 20130518

REACTIONS (5)
  - Bronchospasm [Recovered/Resolved]
  - Cyanosis [Recovered/Resolved]
  - Infusion related reaction [Recovered/Resolved]
  - Pyrexia [Unknown]
  - Nasopharyngitis [Unknown]
